FAERS Safety Report 7323939-6 (Version None)
Quarter: 2011Q1

REPORT INFORMATION
  Report Type: 
  Country: None (occurrence: None)
  Receive Date: 20110301
  Receipt Date: 20110218
  Transmission Date: 20110831
  Serious: Yes (Hospitalization)
  Sender: FDA-Public Use
  Company Number: B0695268A

PATIENT
  Sex: Female
  Weight: 48 kg

DRUGS (14)
  1. REVOLADE [Suspect]
     Indication: IDIOPATHIC THROMBOCYTOPENIC PURPURA
     Dosage: 12.5MG PER DAY
     Route: 048
     Dates: start: 20101227, end: 20110102
  2. GASTER D [Concomitant]
     Indication: PROPHYLAXIS
     Dosage: 40MG PER DAY
     Route: 048
  3. REVOLADE [Suspect]
     Dosage: 25MG PER DAY
     Route: 048
     Dates: start: 20110103, end: 20110130
  4. PREDONINE [Suspect]
     Dosage: 6MG PER DAY
     Route: 048
     Dates: start: 20110108, end: 20110116
  5. CORTICOSTEROID [Concomitant]
  6. REVOLADE [Suspect]
     Dosage: 25MG TWICE PER DAY
     Route: 048
     Dates: start: 20110131
  7. PREDONINE [Suspect]
     Indication: IDIOPATHIC THROMBOCYTOPENIC PURPURA
     Dosage: 7MG PER DAY
     Route: 048
  8. IMMUNE GLOBULIN NOS [Concomitant]
  9. AZATHIOPRINE SODIUM [Concomitant]
  10. DANAZOL [Suspect]
     Indication: IDIOPATHIC THROMBOCYTOPENIC PURPURA
     Dosage: 100MG PER DAY
     Route: 048
     Dates: end: 20110108
  11. CRESTOR [Concomitant]
     Dosage: 2.5MG PER DAY
     Route: 048
  12. PLAVIX [Concomitant]
     Dosage: 75MG PER DAY
     Route: 048
  13. BONALON [Concomitant]
     Route: 048
  14. PREDONINE [Suspect]
     Dosage: 5MG PER DAY
     Route: 048
     Dates: start: 20110117

REACTIONS (3)
  - PULMONARY EMBOLISM [None]
  - DEEP VEIN THROMBOSIS [None]
  - MYALGIA [None]
